FAERS Safety Report 11684837 (Version 2)
Quarter: 2015Q4

REPORT INFORMATION
  Report Type: Report from Study
  Country: US (occurrence: US)
  Receive Date: 20151030
  Receipt Date: 20151030
  Transmission Date: 20160304
  Serious: No
  Sender: FDA-Public Use
  Company Number: PHEH2015US022052

PATIENT
  Sex: Male

DRUGS (1)
  1. ZYKADIA [Suspect]
     Active Substance: CERITINIB
     Indication: BRAIN NEOPLASM
     Dosage: UNK UNK, QD, STARTER PACK
     Route: 048
     Dates: start: 20151017

REACTIONS (2)
  - Off label use [Unknown]
  - Blood glucose increased [Unknown]
